FAERS Safety Report 4808150-2 (Version None)
Quarter: 2005Q4

REPORT INFORMATION
  Report Type: 
  Country: None (occurrence: None)
  Receive Date: 20051021
  Receipt Date: 20021127
  Transmission Date: 20060501
  Serious: No
  Sender: FDA-Public Use
  Company Number: USA021224297

PATIENT
  Sex: Female

DRUGS (1)
  1. ZYPREXA [Suspect]
     Dosage: 5 MG /DAY
     Dates: start: 20021027, end: 20021126

REACTIONS (1)
  - WHITE BLOOD CELL COUNT DECREASED [None]
